FAERS Safety Report 13950362 (Version 1)
Quarter: 2017Q3

REPORT INFORMATION
  Report Type: Spontaneous
  Country: US (occurrence: US)
  Receive Date: 20170908
  Receipt Date: 20170908
  Transmission Date: 20171128
  Serious: No
  Sender: FDA-Public Use
  Company Number: US-ROCHE-1135809

PATIENT
  Age: 82 Year
  Sex: Male

DRUGS (21)
  1. RITUXAN [Suspect]
     Active Substance: RITUXIMAB
     Dosage: 100 CC NS
     Route: 042
     Dates: start: 20001128
  2. SOLU-CORTEF [Concomitant]
     Active Substance: HYDROCORTISONE SODIUM SUCCINATE
     Dosage: 100 CC NS
     Route: 042
     Dates: start: 20001128
  3. SOLU-CORTEF [Concomitant]
     Active Substance: HYDROCORTISONE SODIUM SUCCINATE
     Dosage: 100 CC NS
     Route: 042
     Dates: start: 20001114
  4. BENADRYL [Concomitant]
     Active Substance: DIPHENHYDRAMINE HYDROCHLORIDE
     Dosage: 50 CC NS
     Route: 042
     Dates: start: 20001108
  5. TYLENOL [Concomitant]
     Active Substance: ACETAMINOPHEN
     Dosage: PI ES
     Route: 048
     Dates: start: 20001107
  6. COMPAZINE [Concomitant]
     Active Substance: PROCHLORPERAZINE MALEATE
     Dosage: IVP
     Route: 050
  7. RITUXAN [Suspect]
     Active Substance: RITUXIMAB
     Dosage: 100 CC NS
     Route: 042
     Dates: start: 20001121
  8. BENADRYL [Concomitant]
     Active Substance: DIPHENHYDRAMINE HYDROCHLORIDE
     Dosage: 100 CC NS
     Route: 042
     Dates: start: 20001121
  9. BENADRYL [Concomitant]
     Active Substance: DIPHENHYDRAMINE HYDROCHLORIDE
     Dosage: 100 CC NS
     Route: 042
     Dates: start: 20001128
  10. TYLENOL [Concomitant]
     Active Substance: ACETAMINOPHEN
     Dosage: PI ES
     Route: 048
     Dates: start: 20001108
  11. TYLENOL [Concomitant]
     Active Substance: ACETAMINOPHEN
     Dosage: PI ES
     Route: 048
     Dates: start: 20001128
  12. SOLU-CORTEF [Concomitant]
     Active Substance: HYDROCORTISONE SODIUM SUCCINATE
     Dosage: 100 CC NS
     Route: 042
     Dates: start: 20001107
  13. BENADRYL [Concomitant]
     Active Substance: DIPHENHYDRAMINE HYDROCHLORIDE
     Dosage: 50 CC NS
     Route: 042
     Dates: start: 20001107
  14. RITUXAN [Suspect]
     Active Substance: RITUXIMAB
     Indication: CHRONIC LYMPHOCYTIC LEUKAEMIA
     Dosage: 100 CC NS
     Route: 042
     Dates: start: 20001107
  15. SOLU-CORTEF [Concomitant]
     Active Substance: HYDROCORTISONE SODIUM SUCCINATE
     Dosage: 100 CC NS
     Route: 042
     Dates: start: 20001121
  16. BENADRYL [Concomitant]
     Active Substance: DIPHENHYDRAMINE HYDROCHLORIDE
     Dosage: 50 CC NS
     Route: 042
     Dates: start: 20001114
  17. TYLENOL [Concomitant]
     Active Substance: ACETAMINOPHEN
     Dosage: PI ES
     Route: 048
     Dates: start: 20001114
  18. SOLU-CORTEF [Concomitant]
     Active Substance: HYDROCORTISONE SODIUM SUCCINATE
     Dosage: 100 CC NS
     Route: 042
     Dates: start: 20001108
  19. TYLENOL [Concomitant]
     Active Substance: ACETAMINOPHEN
     Dosage: PI ES
     Route: 048
     Dates: start: 20001121
  20. RITUXAN [Suspect]
     Active Substance: RITUXIMAB
     Dosage: 100 CC NS
     Route: 042
     Dates: start: 20001108
  21. RITUXAN [Suspect]
     Active Substance: RITUXIMAB
     Dosage: 100 CC NS
     Route: 042
     Dates: start: 20001114

REACTIONS (5)
  - Blood pressure decreased [Recovered/Resolved]
  - Abdominal discomfort [Unknown]
  - Fatigue [Unknown]
  - Cold sweat [Unknown]
  - Chills [Recovered/Resolved]

NARRATIVE: CASE EVENT DATE: 20001107
